FAERS Safety Report 25675551 (Version 1)
Quarter: 2025Q3

REPORT INFORMATION
  Report Type: Spontaneous
  Country: EU (occurrence: EU)
  Receive Date: 20250813
  Receipt Date: 20250813
  Transmission Date: 20251020
  Serious: Yes (Other)
  Sender: MYLAN
  Company Number: EU-MYLANLABS-2025M1068047

PATIENT
  Age: 32 Year
  Sex: Female

DRUGS (88)
  1. PREDNISONE [Suspect]
     Active Substance: PREDNISONE
     Indication: Antiacetylcholine receptor antibody positive
     Dosage: UNK, QD; RECEIVED 2.5?60 MG
  2. PREDNISONE [Suspect]
     Active Substance: PREDNISONE
     Indication: Myasthenia gravis
     Dosage: UNK, QD; RECEIVED 2.5?60 MG
  3. PREDNISONE [Suspect]
     Active Substance: PREDNISONE
     Dosage: UNK, QD; RECEIVED 2.5?60 MG
     Route: 065
  4. PREDNISONE [Suspect]
     Active Substance: PREDNISONE
     Dosage: UNK, QD; RECEIVED 2.5?60 MG
     Route: 065
  5. PREDNISONE [Suspect]
     Active Substance: PREDNISONE
     Dosage: UNK, QD; RECEIVED UP TO 60 MG
  6. PREDNISONE [Suspect]
     Active Substance: PREDNISONE
     Dosage: UNK, QD; RECEIVED UP TO 60 MG
  7. PREDNISONE [Suspect]
     Active Substance: PREDNISONE
     Dosage: UNK, QD; RECEIVED UP TO 60 MG
     Route: 065
  8. PREDNISONE [Suspect]
     Active Substance: PREDNISONE
     Dosage: UNK, QD; RECEIVED UP TO 60 MG
     Route: 065
  9. PREDNISONE [Suspect]
     Active Substance: PREDNISONE
     Dosage: 25 MILLIGRAM, QD
     Dates: start: 202308
  10. PREDNISONE [Suspect]
     Active Substance: PREDNISONE
     Dosage: 25 MILLIGRAM, QD
     Dates: start: 202308
  11. PREDNISONE [Suspect]
     Active Substance: PREDNISONE
     Dosage: 25 MILLIGRAM, QD
     Route: 065
     Dates: start: 202308
  12. PREDNISONE [Suspect]
     Active Substance: PREDNISONE
     Dosage: 25 MILLIGRAM, QD
     Route: 065
     Dates: start: 202308
  13. PREDNISONE [Suspect]
     Active Substance: PREDNISONE
     Dosage: 20 MILLIGRAM, QD
  14. PREDNISONE [Suspect]
     Active Substance: PREDNISONE
     Dosage: 20 MILLIGRAM, QD
  15. PREDNISONE [Suspect]
     Active Substance: PREDNISONE
     Dosage: 20 MILLIGRAM, QD
     Route: 065
  16. PREDNISONE [Suspect]
     Active Substance: PREDNISONE
     Dosage: 20 MILLIGRAM, QD
     Route: 065
  17. PREDNISONE [Suspect]
     Active Substance: PREDNISONE
     Dosage: 15 MILLIGRAM, QD
  18. PREDNISONE [Suspect]
     Active Substance: PREDNISONE
     Dosage: 15 MILLIGRAM, QD
     Route: 065
  19. PREDNISONE [Suspect]
     Active Substance: PREDNISONE
     Dosage: 15 MILLIGRAM, QD
  20. PREDNISONE [Suspect]
     Active Substance: PREDNISONE
     Dosage: 15 MILLIGRAM, QD
     Route: 065
  21. PREDNISONE [Suspect]
     Active Substance: PREDNISONE
     Dosage: 37.5 MILLIGRAM, QD
  22. PREDNISONE [Suspect]
     Active Substance: PREDNISONE
     Dosage: 37.5 MILLIGRAM, QD
  23. PREDNISONE [Suspect]
     Active Substance: PREDNISONE
     Dosage: 37.5 MILLIGRAM, QD
     Route: 065
  24. PREDNISONE [Suspect]
     Active Substance: PREDNISONE
     Dosage: 37.5 MILLIGRAM, QD
     Route: 065
  25. PREDNISONE [Suspect]
     Active Substance: PREDNISONE
     Dosage: 50 MILLIGRAM, QD
  26. PREDNISONE [Suspect]
     Active Substance: PREDNISONE
     Dosage: 50 MILLIGRAM, QD
  27. PREDNISONE [Suspect]
     Active Substance: PREDNISONE
     Dosage: 50 MILLIGRAM, QD
     Route: 065
  28. PREDNISONE [Suspect]
     Active Substance: PREDNISONE
     Dosage: 50 MILLIGRAM, QD
     Route: 065
  29. PREDNISONE [Suspect]
     Active Substance: PREDNISONE
  30. PREDNISONE [Suspect]
     Active Substance: PREDNISONE
  31. PREDNISONE [Suspect]
     Active Substance: PREDNISONE
     Route: 065
  32. PREDNISONE [Suspect]
     Active Substance: PREDNISONE
     Route: 065
  33. PREDNISONE [Suspect]
     Active Substance: PREDNISONE
  34. PREDNISONE [Suspect]
     Active Substance: PREDNISONE
  35. PREDNISONE [Suspect]
     Active Substance: PREDNISONE
     Route: 065
  36. PREDNISONE [Suspect]
     Active Substance: PREDNISONE
     Route: 065
  37. PREDNISONE [Suspect]
     Active Substance: PREDNISONE
  38. PREDNISONE [Suspect]
     Active Substance: PREDNISONE
  39. PREDNISONE [Suspect]
     Active Substance: PREDNISONE
     Route: 065
  40. PREDNISONE [Suspect]
     Active Substance: PREDNISONE
     Route: 065
  41. PREDNISONE [Suspect]
     Active Substance: PREDNISONE
  42. PREDNISONE [Suspect]
     Active Substance: PREDNISONE
  43. PREDNISONE [Suspect]
     Active Substance: PREDNISONE
     Route: 065
  44. PREDNISONE [Suspect]
     Active Substance: PREDNISONE
     Route: 065
  45. PYRIDOSTIGMINE [Suspect]
     Active Substance: PYRIDOSTIGMINE
     Indication: Antiacetylcholine receptor antibody positive
     Route: 065
  46. PYRIDOSTIGMINE [Suspect]
     Active Substance: PYRIDOSTIGMINE
     Indication: Myasthenia gravis
  47. PYRIDOSTIGMINE [Suspect]
     Active Substance: PYRIDOSTIGMINE
  48. PYRIDOSTIGMINE [Suspect]
     Active Substance: PYRIDOSTIGMINE
     Route: 065
  49. PYRIDOSTIGMINE [Suspect]
     Active Substance: PYRIDOSTIGMINE
     Dosage: 60 MILLIGRAM, QID
  50. PYRIDOSTIGMINE [Suspect]
     Active Substance: PYRIDOSTIGMINE
     Dosage: 60 MILLIGRAM, QID
  51. PYRIDOSTIGMINE [Suspect]
     Active Substance: PYRIDOSTIGMINE
     Dosage: 60 MILLIGRAM, QID
     Route: 065
  52. PYRIDOSTIGMINE [Suspect]
     Active Substance: PYRIDOSTIGMINE
     Dosage: 60 MILLIGRAM, QID
     Route: 065
  53. PYRIDOSTIGMINE [Suspect]
     Active Substance: PYRIDOSTIGMINE
     Dosage: 180 MILLIGRAM, QD
     Route: 065
     Dates: start: 202308
  54. PYRIDOSTIGMINE [Suspect]
     Active Substance: PYRIDOSTIGMINE
     Dosage: 180 MILLIGRAM, QD
     Dates: start: 202308
  55. PYRIDOSTIGMINE [Suspect]
     Active Substance: PYRIDOSTIGMINE
     Dosage: 180 MILLIGRAM, QD
     Dates: start: 202308
  56. PYRIDOSTIGMINE [Suspect]
     Active Substance: PYRIDOSTIGMINE
     Dosage: 180 MILLIGRAM, QD
     Route: 065
     Dates: start: 202308
  57. PYRIDOSTIGMINE [Suspect]
     Active Substance: PYRIDOSTIGMINE
     Dosage: UNK, QD; RECEIVED UP TO 240 MG
  58. PYRIDOSTIGMINE [Suspect]
     Active Substance: PYRIDOSTIGMINE
     Dosage: UNK, QD; RECEIVED UP TO 240 MG
  59. PYRIDOSTIGMINE [Suspect]
     Active Substance: PYRIDOSTIGMINE
     Dosage: UNK, QD; RECEIVED UP TO 240 MG
     Route: 065
  60. PYRIDOSTIGMINE [Suspect]
     Active Substance: PYRIDOSTIGMINE
     Dosage: UNK, QD; RECEIVED UP TO 240 MG
     Route: 065
  61. PYRIDOSTIGMINE [Suspect]
     Active Substance: PYRIDOSTIGMINE
  62. PYRIDOSTIGMINE [Suspect]
     Active Substance: PYRIDOSTIGMINE
  63. PYRIDOSTIGMINE [Suspect]
     Active Substance: PYRIDOSTIGMINE
     Route: 065
  64. PYRIDOSTIGMINE [Suspect]
     Active Substance: PYRIDOSTIGMINE
     Route: 065
  65. PYRIDOSTIGMINE [Suspect]
     Active Substance: PYRIDOSTIGMINE
  66. PYRIDOSTIGMINE [Suspect]
     Active Substance: PYRIDOSTIGMINE
     Route: 065
  67. PYRIDOSTIGMINE [Suspect]
     Active Substance: PYRIDOSTIGMINE
  68. PYRIDOSTIGMINE [Suspect]
     Active Substance: PYRIDOSTIGMINE
     Route: 065
  69. Immunoglobulin [Concomitant]
     Indication: Antiacetylcholine receptor antibody positive
  70. Immunoglobulin [Concomitant]
     Indication: Myasthenia gravis
     Route: 042
  71. Immunoglobulin [Concomitant]
     Route: 042
  72. Immunoglobulin [Concomitant]
  73. CISPLATIN [Concomitant]
     Active Substance: CISPLATIN
     Indication: Thymoma
  74. CISPLATIN [Concomitant]
     Active Substance: CISPLATIN
     Route: 065
  75. CISPLATIN [Concomitant]
     Active Substance: CISPLATIN
     Route: 065
  76. CISPLATIN [Concomitant]
     Active Substance: CISPLATIN
  77. EPIRUBICIN [Concomitant]
     Active Substance: EPIRUBICIN
     Indication: Thymoma
  78. EPIRUBICIN [Concomitant]
     Active Substance: EPIRUBICIN
     Route: 065
  79. EPIRUBICIN [Concomitant]
     Active Substance: EPIRUBICIN
     Route: 065
  80. EPIRUBICIN [Concomitant]
     Active Substance: EPIRUBICIN
  81. CYCLOPHOSPHAMIDE [Concomitant]
     Active Substance: CYCLOPHOSPHAMIDE
     Indication: Thymoma
  82. CYCLOPHOSPHAMIDE [Concomitant]
     Active Substance: CYCLOPHOSPHAMIDE
     Route: 065
  83. CYCLOPHOSPHAMIDE [Concomitant]
     Active Substance: CYCLOPHOSPHAMIDE
     Route: 065
  84. CYCLOPHOSPHAMIDE [Concomitant]
     Active Substance: CYCLOPHOSPHAMIDE
  85. PIPERACILLIN AND TAZOBACTAM [Concomitant]
     Active Substance: PIPERACILLIN SODIUM\TAZOBACTAM SODIUM
     Indication: Pneumonia
  86. PIPERACILLIN AND TAZOBACTAM [Concomitant]
     Active Substance: PIPERACILLIN SODIUM\TAZOBACTAM SODIUM
     Route: 065
  87. PIPERACILLIN AND TAZOBACTAM [Concomitant]
     Active Substance: PIPERACILLIN SODIUM\TAZOBACTAM SODIUM
     Route: 065
  88. PIPERACILLIN AND TAZOBACTAM [Concomitant]
     Active Substance: PIPERACILLIN SODIUM\TAZOBACTAM SODIUM

REACTIONS (4)
  - Myasthenia gravis [Recovered/Resolved]
  - Increased upper airway secretion [Unknown]
  - Maternal exposure during pregnancy [Recovered/Resolved]
  - Normal newborn [Recovered/Resolved]

NARRATIVE: CASE EVENT DATE: 20230801
